FAERS Safety Report 15126423 (Version 2)
Quarter: 2018Q3

REPORT INFORMATION
  Report Type: Spontaneous
  Country: PT (occurrence: PT)
  Receive Date: 20180710
  Receipt Date: 20180713
  Transmission Date: 20181010
  Serious: Yes (Disabling)
  Sender: FDA-Public Use
  Company Number: PT-ALSI-201800417

PATIENT
  Sex: Male

DRUGS (1)
  1. OXYGEN. [Suspect]
     Active Substance: OXYGEN
     Indication: ACCIDENTAL EXPOSURE TO PRODUCT
     Route: 003
     Dates: start: 20180602, end: 20180602

REACTIONS (4)
  - Accidental exposure to product [Unknown]
  - Product leakage [Unknown]
  - Thermal burn [Unknown]
  - Accident [Unknown]

NARRATIVE: CASE EVENT DATE: 20180602
